FAERS Safety Report 19482526 (Version 1)
Quarter: 2021Q3

REPORT INFORMATION
  Report Type: Spontaneous
  Country: US (occurrence: US)
  Receive Date: 20210701
  Receipt Date: 20210701
  Transmission Date: 20211014
  Serious: Yes (Other)
  Sender: FDA-Public Use
  Company Number: US-BAYER-2021-164614

PATIENT
  Age: 6 Year
  Sex: Male

DRUGS (3)
  1. KOVALTRY [Suspect]
     Active Substance: ANTIHEMOPHILIC FACTOR, HUMAN RECOMBINANT
     Dosage: 1250 IU, FOR THE LIMB INJURY TREATMENT
     Route: 042
     Dates: start: 20210623, end: 20210623
  2. KOVALTRY [Suspect]
     Active Substance: ANTIHEMOPHILIC FACTOR, HUMAN RECOMBINANT
  3. KOVALTRY [Suspect]
     Active Substance: ANTIHEMOPHILIC FACTOR, HUMAN RECOMBINANT
     Dosage: 1250 IU, FOR THE WOUND BLEEDING TREATMENT
     Route: 042
     Dates: start: 20210623, end: 20210623

REACTIONS (2)
  - Wound haemorrhage [Recovered/Resolved]
  - Venomous sting [Recovered/Resolved]

NARRATIVE: CASE EVENT DATE: 20210623
